FAERS Safety Report 5094542-6 (Version None)
Quarter: 2006Q3

REPORT INFORMATION
  Report Type: 
  Country: None (occurrence: None)
  Receive Date: 20060731
  Receipt Date: 20060421
  Transmission Date: 20061208
  Serious: No
  Sender: FDA-Public Use
  Company Number: 2006PV012585

PATIENT
  Age: 49 Year
  Sex: Male
  Weight: 138.3471 kg

DRUGS (7)
  1. BYETTA [Suspect]
     Indication: DIABETES MELLITUS NON-INSULIN-DEPENDENT
     Dosage: SEE IMAGE
     Route: 058
     Dates: start: 20060224, end: 20060401
  2. BYETTA [Suspect]
     Indication: DIABETES MELLITUS NON-INSULIN-DEPENDENT
     Dosage: SEE IMAGE
     Route: 058
     Dates: start: 20060401
  3. METFORMIN HCL [Suspect]
     Indication: WEIGHT DECREASED
     Dosage: 850 MG; BID; SC
     Route: 058
     Dates: start: 20060224, end: 20060301
  4. GLIPIZIDE [Concomitant]
  5. ACTOS [Concomitant]
  6. LANTUS [Concomitant]
  7. METFORMIN HCL [Concomitant]

REACTIONS (6)
  - ABDOMINAL PAIN [None]
  - BLOOD GLUCOSE INCREASED [None]
  - DIARRHOEA [None]
  - FOOD POISONING [None]
  - NAUSEA [None]
  - VOMITING [None]
